FAERS Safety Report 4343508-X (Version None)
Quarter: 2004Q2

REPORT INFORMATION
  Report Type: 
  Country: None (occurrence: None)
  Receive Date: 20040421
  Receipt Date: 20040421
  Transmission Date: 20050107
  Serious: Yes (Hospitalization)
  Sender: FDA-Public Use
  Company Number: None

PATIENT
  Age: 80 Year
  Sex: Male
  Weight: 90.7194 kg

DRUGS (1)
  1. ARIXTRA [Suspect]
     Indication: HIP ARTHROPLASTY
     Dosage: 2.MG Q24H SUBQ
     Route: 058
     Dates: start: 20040224, end: 20040304

REACTIONS (1)
  - RETROPERITONEAL HAEMORRHAGE [None]
